FAERS Safety Report 14803957 (Version 1)
Quarter: 2018Q2

REPORT INFORMATION
  Report Type: Spontaneous
  Country: US (occurrence: US)
  Receive Date: 20180425
  Receipt Date: 20180425
  Transmission Date: 20180711
  Serious: No
  Sender: FDA-Public Use
  Company Number: US-PFIZER INC-2017130241

PATIENT
  Age: 10 Year
  Sex: Male

DRUGS (3)
  1. GENOTROPIN [Suspect]
     Active Substance: SOMATROPIN
     Dosage: 1.1 MG, ALTERNATE DAY (ALTERNATE 1.0MG AND 1.2MG DAILY DOSE)
     Dates: start: 20170323
  2. GENOTROPIN [Suspect]
     Active Substance: SOMATROPIN
     Indication: BLOOD GROWTH HORMONE
     Dosage: 1.1 MG, UNK
     Dates: start: 20170323
  3. GENOTROPIN [Suspect]
     Active Substance: SOMATROPIN
     Dosage: 1.2 MG, ALTERNATE DAY (ALTERNATE 1.0MG AND 1.2MG DAILY DOSE)
     Dates: start: 20170323

REACTIONS (2)
  - Rash [Unknown]
  - Drug prescribing error [Unknown]
